FAERS Safety Report 10081166 (Version 1)
Quarter: 2014Q2

REPORT INFORMATION
  Report Type: Report from Study
  Country: JP (occurrence: JP)
  Receive Date: 20140416
  Receipt Date: 20140416
  Transmission Date: 20141212
  Serious: Yes (Hospitalization)
  Sender: FDA-Public Use
  Company Number: JP-009507513-1112USA02434

PATIENT
  Age: 84 Year
  Sex: Male

DRUGS (12)
  1. MK-2452 [Suspect]
     Indication: OCULAR HYPERTENSION
     Dosage: 1 GTT, QD
     Route: 047
     Dates: start: 20090812, end: 20100913
  2. MK-2452 [Suspect]
     Dosage: 1 GTT, QD
     Route: 047
     Dates: start: 20101006
  3. TIMOLOL MALEATE [Suspect]
     Indication: OCULAR HYPERTENSION
     Dosage: 1 GTT, QD
     Route: 047
     Dates: end: 20100913
  4. TIMOLOL MALEATE [Suspect]
     Dosage: 1 GTT, QD
     Route: 047
     Dates: start: 20101006
  5. HYALEIN [Suspect]
     Dosage: UNK
     Route: 047
  6. CRAVIT [Concomitant]
     Dosage: UNK
  7. RINDERON (BETAMETHASONE SODIUM PHOSPHATE) [Concomitant]
     Dosage: UNK
  8. DICLOD [Concomitant]
     Dosage: UNK
  9. MYDRIN-P [Concomitant]
     Dosage: UNK
  10. NEOSYNESIN [Concomitant]
     Dosage: UNK
  11. CEFZON [Concomitant]
     Dosage: UNK
  12. SEFMAZON [Concomitant]
     Dosage: UNK

REACTIONS (3)
  - Cataract [Recovered/Resolved]
  - Intraocular pressure increased [Recovered/Resolved]
  - Conjunctival hyperaemia [Recovered/Resolved]
